FAERS Safety Report 21733152 (Version 1)
Quarter: 2022Q4

REPORT INFORMATION
  Report Type: Report from Study
  Country: DE (occurrence: DE)
  Receive Date: 20221215
  Receipt Date: 20221215
  Transmission Date: 20230113
  Serious: Yes (Hospitalization, Other)
  Sender: FDA-Public Use
  Company Number: DE-BRISTOL-MYERS SQUIBB COMPANY-2022-127561

PATIENT
  Age: 73 Year
  Sex: Female
  Weight: 56 kg

DRUGS (2)
  1. AZACITIDINE [Suspect]
     Active Substance: AZACITIDINE
     Indication: Ductal adenocarcinoma of pancreas
     Dosage: CYCLE 1 STRENGTH 30 MG/M2
     Route: 058
     Dates: start: 20221017, end: 20221021
  2. AMOCLAV [AMOXICILLIN SODIUM;CLAVULANATE POTASSIUM] [Concomitant]
     Indication: Cholangitis chronic
     Dosage: 1-0-1
     Route: 048
     Dates: start: 20221014

REACTIONS (2)
  - Cholangitis [Recovered/Resolved with Sequelae]
  - Complication associated with device [Recovered/Resolved with Sequelae]

NARRATIVE: CASE EVENT DATE: 20221025
